FAERS Safety Report 13942379 (Version 1)
Quarter: 2017Q3

REPORT INFORMATION
  Report Type: Spontaneous
  Country: NL (occurrence: NL)
  Receive Date: 20170907
  Receipt Date: 20170907
  Transmission Date: 20171127
  Serious: Yes (Other)
  Sender: FDA-Public Use
  Company Number: NL-BAYER-2017-166855

PATIENT
  Age: 54 Year
  Sex: Female

DRUGS (1)
  1. GADOVIST [Suspect]
     Active Substance: GADOBUTROL
     Indication: BRAIN NEOPLASM
     Dosage: 7.5 ML, BID
     Route: 042
     Dates: start: 20170828, end: 20170828

REACTIONS (9)
  - Post procedural swelling [None]
  - Presyncope [None]
  - Headache [Unknown]
  - Abdominal pain upper [Unknown]
  - Tongue oedema [Unknown]
  - Deafness [Unknown]
  - Limb discomfort [Unknown]
  - Dysarthria [Unknown]
  - Confusional state [Unknown]

NARRATIVE: CASE EVENT DATE: 20170828
